FAERS Safety Report 7653184-6 (Version None)
Quarter: 2011Q3

REPORT INFORMATION
  Report Type: 
  Country: None (occurrence: None)
  Receive Date: 20110728
  Receipt Date: 20110712
  Transmission Date: 20111222
  Serious: Yes (Other)
  Sender: FDA-Public Use
  Company Number: AUR-APL-2011-03944

PATIENT
  Age: 38 Year

DRUGS (1)
  1. TOPIRAMATE [Suspect]
     Indication: MIGRAINE
     Dosage: (25 MG, 1 D)

REACTIONS (9)
  - CILIARY BODY DISORDER [None]
  - MYOPIA [None]
  - FLAT ANTERIOR CHAMBER OF EYE [None]
  - ANXIETY [None]
  - IDIOSYNCRATIC DRUG REACTION [None]
  - CHOROIDAL EFFUSION [None]
  - LENS DISLOCATION [None]
  - IRIS CONVEX [None]
  - CHOROIDAL DETACHMENT [None]
